FAERS Safety Report 15462626 (Version 1)
Quarter: 2018Q4

REPORT INFORMATION
  Report Type: Report from Study
  Country: DE (occurrence: DE)
  Receive Date: 20181004
  Receipt Date: 20181004
  Transmission Date: 20190204
  Serious: Yes (Other)
  Sender: FDA-Public Use
  Company Number: DE-ROCHE-2192399

PATIENT
  Age: 65 Year
  Sex: Female
  Weight: 80 kg

DRUGS (9)
  1. RANIBIZUMAB. [Suspect]
     Active Substance: RANIBIZUMAB
     Dosage: (RIGHT EYE)
     Route: 031
     Dates: start: 20160316
  2. RANIBIZUMAB. [Suspect]
     Active Substance: RANIBIZUMAB
     Indication: VISUAL IMPAIRMENT
     Dosage: (RIGHT EYE)
     Route: 031
     Dates: start: 20151118
  3. RANIBIZUMAB. [Suspect]
     Active Substance: RANIBIZUMAB
     Dosage: (RIGHT EYE)
     Route: 031
     Dates: start: 20160217
  4. RANIBIZUMAB. [Suspect]
     Active Substance: RANIBIZUMAB
     Dosage: (RIGHT EYE).?LAST DOSE PRIOR TO ONSET OF EVENTS ON 18/MAY/2016.
     Route: 031
     Dates: start: 20160518
  5. RANIBIZUMAB. [Suspect]
     Active Substance: RANIBIZUMAB
     Indication: DIABETIC RETINAL OEDEMA
     Dosage: (RIGHT EYE)
     Route: 031
     Dates: start: 20151223
  6. PREDNI-POS [Concomitant]
     Indication: PULMONARY TUBERCULOSIS
     Dosage: UNK (LEFT)
     Route: 065
  7. RANIBIZUMAB. [Suspect]
     Active Substance: RANIBIZUMAB
     Dosage: (RIGHT EYE)
     Route: 031
     Dates: start: 20160420
  8. RANIBIZUMAB. [Suspect]
     Active Substance: RANIBIZUMAB
     Dosage: 0.5 MG, UNK (RIGHT EYE)
     Route: 031
     Dates: start: 20160120
  9. ATROPIN [Concomitant]
     Active Substance: ATROPINE
     Indication: PULMONARY TUBERCULOSIS
     Dosage: UNK (LEFT)
     Route: 065

REACTIONS (3)
  - Cystoid macular oedema [Recovered/Resolved]
  - Drug ineffective [Unknown]
  - Ocular hyperaemia [Recovered/Resolved]

NARRATIVE: CASE EVENT DATE: 20160520
